FAERS Safety Report 10686377 (Version 1)
Quarter: 2014Q4

REPORT INFORMATION
  Report Type: Spontaneous
  Country: US (occurrence: US)
  Receive Date: 20141231
  Receipt Date: 20141231
  Transmission Date: 20150529
  Serious: Yes (Other)
  Sender: FDA-Public Use
  Company Number: US-PFIZER INC-2014354455

PATIENT
  Age: 15 Year
  Sex: Male
  Weight: 57 kg

DRUGS (2)
  1. IBUPROFEN. [Suspect]
     Active Substance: IBUPROFEN
     Dosage: 50 PILLS OF IBUPROFEN (200 MG/TABLET; 10, 000 MG)
  2. NAPROXEN SODIUM. [Suspect]
     Active Substance: NAPROXEN SODIUM
     Dosage: 150 PILLS OF NAPROXEN (220 MG/TABLET; 33, 000 MG)

REACTIONS (9)
  - Hypotension [Unknown]
  - Adrenal insufficiency [Unknown]
  - Intentional overdose [Unknown]
  - Mental status changes [Unknown]
  - Vomiting [Unknown]
  - Metabolic acidosis [Unknown]
  - Suicide attempt [Unknown]
  - Toxicity to various agents [Unknown]
  - Lethargy [Unknown]
